FAERS Safety Report 6418217-3 (Version None)
Quarter: 2009Q4

REPORT INFORMATION
  Report Type: 
  Country: None (occurrence: None)
  Receive Date: 20091026
  Receipt Date: 20091013
  Transmission Date: 20100525
  Serious: Yes (Life-Threatening, Hospitalization)
  Sender: FDA-Public Use
  Company Number: ADR38602009

PATIENT
  Age: 65 Year
  Sex: Male

DRUGS (8)
  1. SIMVASTATIN [Suspect]
     Indication: MYOCARDIAL ISCHAEMIA
     Dosage: 40 MG, ORAL
     Route: 048
     Dates: start: 20010101, end: 20080212
  2. SODIUM FUSIDATE [Concomitant]
  3. AMLODIPINE [Concomitant]
  4. ATENOLOL [Concomitant]
  5. BENDROFLUAZIDE [Concomitant]
  6. DOXAZOSIN MESYLATE [Concomitant]
  7. FLUCLOXACILLIN [Concomitant]
  8. RAMIPRIL [Concomitant]

REACTIONS (6)
  - ASTHENIA [None]
  - BLOOD CREATINE PHOSPHOKINASE INCREASED [None]
  - DRUG INTERACTION [None]
  - HYPOXIA [None]
  - MYALGIA [None]
  - RHABDOMYOLYSIS [None]
